FAERS Safety Report 13674843 (Version 1)
Quarter: 2017Q2

REPORT INFORMATION
  Report Type: Spontaneous
  Country: US (occurrence: US)
  Receive Date: 20170621
  Receipt Date: 20170621
  Transmission Date: 20170830
  Serious: No
  Sender: FDA-Public Use
  Company Number: US-PFIZER INC-2017266467

PATIENT
  Age: 95 Year
  Sex: Female

DRUGS (1)
  1. ZOLOFT [Suspect]
     Active Substance: SERTRALINE HYDROCHLORIDE
     Dosage: UNK

REACTIONS (8)
  - Blood pressure fluctuation [Unknown]
  - Asthenia [Unknown]
  - Balance disorder [Unknown]
  - Diplopia [Unknown]
  - Gait disturbance [Unknown]
  - Blood sodium decreased [Unknown]
  - Weight increased [Unknown]
  - Paraesthesia [Unknown]
